FAERS Safety Report 10380679 (Version 1)
Quarter: 2014Q1

REPORT INFORMATION
  Report Type: Spontaneous
  Country: US (occurrence: None)
  Receive Date: 20140306
  Receipt Date: 20140306
  Transmission Date: 20141002
  Serious: Yes (Other)
  Sender: FDA-Public Use
  Company Number: 163-21880-13040251

PATIENT
  Age: 64 Year
  Sex: Female
  Weight: 88.91 kg

DRUGS (16)
  1. REVLIMID (LENALIDOMIDE) (25 MILLIGRAM, CAPSULES) [Suspect]
     Indication: AMYLOIDOSIS
     Dosage: 25 MG, 21 IN 21 D, PO?THERAPY?02/05/2013-PERMANENTLY DISCONTINUED
     Route: 048
     Dates: start: 20130205
  2. XANAX (ALPRAZOLAM) [Concomitant]
  3. WARFARIN SODIUM(WARFARIN SODIUM) [Concomitant]
  4. TYLENOL CODEINE #3 (PANADEINE CO) [Concomitant]
  5. RISPERDALE (RISPERIDONE) [Concomitant]
  6. PREDNISONE(PREDNISONE) [Concomitant]
  7. PILOCARPINE HCL(PILOCARPINE HYDROCHLORIDE) [Concomitant]
  8. LOVASTATIN(LOVASTATIN) [Concomitant]
  9. LEXAPRO(ESCITALOPRAM OXALATE) [Concomitant]
  10. LANSOPRAZOLE(LANSOPRAZOLE) [Concomitant]
  11. DEXAMETHASONE(DEXAMETHASONE) [Concomitant]
  12. CLONIDINE HCL(CLONIDINE HYDROCHLORIDE) [Concomitant]
  13. CARVEDILOL(CARVEDILOL) [Concomitant]
  14. AZELASTINE(AZELASTINE) [Concomitant]
  15. APRISO(MESALAZINE) [Concomitant]
  16. AMLODIPINE BESYLATE(AMLODIPINE BESILATE) [Concomitant]

REACTIONS (4)
  - Flatulence [None]
  - Diarrhoea [None]
  - Fatigue [None]
  - Drug ineffective [None]
